FAERS Safety Report 16281910 (Version 1)
Quarter: 2019Q2

REPORT INFORMATION
  Report Type: Spontaneous
  Country: PT (occurrence: PT)
  Receive Date: 20190507
  Receipt Date: 20190507
  Transmission Date: 20190711
  Serious: Yes (Hospitalization)
  Sender: FDA-Public Use
  Company Number: PT-MYLANLABS-2019M1039907

PATIENT
  Age: 53 Year
  Sex: Male

DRUGS (1)
  1. IMATINIB. [Suspect]
     Active Substance: IMATINIB MESYLATE
     Indication: CHRONIC MYELOID LEUKAEMIA
     Dosage: UNK
     Route: 065

REACTIONS (17)
  - Asthenia [Recovering/Resolving]
  - Scedosporium infection [Unknown]
  - Respiratory tract infection [Recovered/Resolved]
  - Cervical cyst [Unknown]
  - Productive cough [Recovering/Resolving]
  - Respiratory failure [Recovering/Resolving]
  - Pneumothorax [Recovering/Resolving]
  - Purulent discharge [Unknown]
  - Actinomycosis [Recovering/Resolving]
  - Tuberculosis [Unknown]
  - Pleurocutaneous fistula [Unknown]
  - Oedema [Unknown]
  - Pyrexia [Recovering/Resolving]
  - Weight decreased [Recovering/Resolving]
  - Empyema [Unknown]
  - Aspergillus infection [Recovered/Resolved]
  - Nocardiosis [Recovering/Resolving]

NARRATIVE: CASE EVENT DATE: 201612
